FAERS Safety Report 7552746-4 (Version None)
Quarter: 2011Q2

REPORT INFORMATION
  Report Type: 
  Country: None (occurrence: None)
  Receive Date: 20110616
  Receipt Date: 20110613
  Transmission Date: 20111010
  Serious: Yes (Hospitalization, Other)
  Sender: FDA-Public Use
  Company Number: US-PFIZER INC-2011110415

PATIENT
  Sex: Female

DRUGS (13)
  1. AMBIEN [Concomitant]
     Dosage: 10 MG, 1X/DAY
     Route: 048
  2. DILTIAZEM [Concomitant]
     Dosage: 120 MG, 1X/DAY
     Route: 048
  3. FLUCONAZOLE [Concomitant]
     Dosage: 100 MG, 1X/DAY
     Route: 048
     Dates: start: 20110509
  4. SIMVASTATIN [Concomitant]
     Dosage: 80 MG, 1X/DAY
     Route: 048
  5. ULTRAM [Concomitant]
     Dosage: 50 MG, AS NEEDED
     Route: 048
  6. LISINOPRIL [Concomitant]
     Dosage: 10 MG, 1X/DAY
     Route: 048
  7. OMEPRAZOLE [Concomitant]
     Dosage: 20 MG, 1X/DAY
  8. GLUCOSAMINE [Concomitant]
  9. MAGNESIUM [Concomitant]
  10. PAMELOR [Concomitant]
     Dosage: 25 MG, 1X/DAY
     Route: 048
  11. SUTENT [Suspect]
     Indication: RENAL CELL CARCINOMA
     Dosage: 50 MG, 1X/DAY X 28 DAYS, THEN 14 DAYS OFF
     Route: 048
     Dates: start: 20110322, end: 20110513
  12. ACTOS [Concomitant]
     Dosage: 15 MG, 1X/DAY
     Route: 048
  13. MINOCYCLINE [Concomitant]
     Dosage: 100 MG, 2X/DAY
     Dates: start: 20110509

REACTIONS (6)
  - FATIGUE [None]
  - LIPASE INCREASED [None]
  - VOMITING [None]
  - DIZZINESS [None]
  - TACHYCARDIA [None]
  - NAUSEA [None]
